FAERS Safety Report 7861301-8 (Version None)
Quarter: 2011Q4

REPORT INFORMATION
  Report Type: 
  Country: None (occurrence: None)
  Receive Date: 20111027
  Receipt Date: 20111017
  Transmission Date: 20120403
  Serious: Yes (Hospitalization)
  Sender: FDA-Public Use
  Company Number: PHHY2011CN92693

PATIENT
  Age: 79 Year
  Sex: Male

DRUGS (9)
  1. CARBAMAZEPINE [Interacting]
     Dosage: 0.2 TWICE DAILY
  2. METOPROLOL TARTRATE [Interacting]
     Indication: HYPERTENSION
     Dosage: 25 MG, BID
  3. RADIATION THERAPY [Concomitant]
     Indication: TRIGEMINAL NERVE DISORDER
     Dosage: 80 GY, UNK
  4. AMLODIPINE [Concomitant]
  5. NITRENDIPINE [Concomitant]
     Indication: HYPERTENSION
     Route: 048
  6. CARBAMAZEPINE [Suspect]
     Indication: TRIGEMINAL NEURALGIA
     Dosage: 0.1 UKN, BID
     Route: 048
  7. CARBAMAZEPINE [Interacting]
     Dosage: 0.2 UKN , THRICE DAILY
  8. ENALAPRIL MALEATE [Concomitant]
     Indication: HYPERTENSION
     Route: 048
  9. CARBAMAZEPINE [Interacting]
     Dosage: 0.5 UKN, DAILY

REACTIONS (10)
  - ARRHYTHMIA [None]
  - CHEST DISCOMFORT [None]
  - PALPITATIONS [None]
  - VENTRICULAR EXTRASYSTOLES [None]
  - SINUS ARREST [None]
  - DIZZINESS [None]
  - DIASTOLIC DYSFUNCTION [None]
  - SINUS BRADYCARDIA [None]
  - SUPRAVENTRICULAR EXTRASYSTOLES [None]
  - HEART RATE DECREASED [None]
